FAERS Safety Report 24927654 (Version 1)
Quarter: 2025Q1

REPORT INFORMATION
  Report Type: Spontaneous
  Country: US (occurrence: None)
  Receive Date: 20250204
  Receipt Date: 20250204
  Transmission Date: 20250409
  Serious: Yes (Life-Threatening, Hospitalization)
  Sender: FDA-CTU
  Company Number: None

PATIENT
  Age: 49 Year
  Sex: Female
  Weight: 65 kg

DRUGS (2)
  1. HALDOL [Suspect]
     Active Substance: HALOPERIDOL
     Route: 048
  2. CLOZAPINE [Suspect]
     Active Substance: CLOZAPINE
     Indication: Schizoaffective disorder
     Dosage: FREQUENCY : AT BEDTIME;?
     Route: 048
     Dates: start: 20250111

REACTIONS (9)
  - Neuroleptic malignant syndrome [None]
  - Tachycardia [None]
  - Hyperhidrosis [None]
  - Tremor [None]
  - Blood lactic acid increased [None]
  - Blood creatine phosphokinase increased [None]
  - COVID-19 [None]
  - Encephalopathy [None]
  - Sedation [None]

NARRATIVE: CASE EVENT DATE: 20250119
